FAERS Safety Report 13451899 (Version 2)
Quarter: 2017Q2

REPORT INFORMATION
  Report Type: Report from Study
  Country: CN (occurrence: CN)
  Receive Date: 20170418
  Receipt Date: 20170426
  Transmission Date: 20170830
  Serious: Yes (Hospitalization, Other)
  Sender: FDA-Public Use
  Company Number: PHHY2017CN056768

PATIENT
  Age: 71 Year
  Sex: Male

DRUGS (1)
  1. VALSARTAN. [Suspect]
     Active Substance: VALSARTAN
     Indication: PRODUCT USED FOR UNKNOWN INDICATION
     Dosage: 80 MG, QD
     Route: 048

REACTIONS (17)
  - Wheezing [Unknown]
  - Chest discomfort [Recovering/Resolving]
  - Blood pressure increased [Unknown]
  - Sputum abnormal [Unknown]
  - Sputum discoloured [Unknown]
  - Hyperuricaemia [Unknown]
  - Hepatic congestion [Unknown]
  - Cardiac failure [Unknown]
  - Viral upper respiratory tract infection [Unknown]
  - Hepatic steatosis [Unknown]
  - Productive cough [Unknown]
  - Cough [Unknown]
  - Arteriosclerosis [Unknown]
  - Lung infection [Recovering/Resolving]
  - Atrial fibrillation [Not Recovered/Not Resolved]
  - Palpitations [Recovered/Resolved with Sequelae]
  - Coronary artery disease [Unknown]
